FAERS Safety Report 5345569-8 (Version None)
Quarter: 2007Q2

REPORT INFORMATION
  Report Type: 
  Country: None (occurrence: None)
  Receive Date: 20070605
  Receipt Date: 20060512
  Transmission Date: 20071010
  Serious: No
  Sender: FDA-Public Use
  Company Number: US-ASTRAZENECA-2006UW04409

PATIENT
  Age: 80 Year
  Sex: Female
  Weight: 67.3 kg

DRUGS (4)
  1. PRILOSEC [Suspect]
     Indication: GASTROOESOPHAGEAL REFLUX DISEASE
     Route: 048
  2. PRILOSEC OTC [Suspect]
     Indication: REFLUX OESOPHAGITIS
     Dosage: 1 TABLET, 1/DAY FOR 30 DAYS, TOTAL DOSAGE 27 TABLETS
     Route: 048
     Dates: start: 20060209, end: 20060309
  3. PRILOSEC OTC [Suspect]
     Indication: GASTROOESOPHAGEAL REFLUX DISEASE
     Dosage: 1 TABLET, 1/DAY FOR 30 DAYS, TOTAL DOSAGE 27 TABLETS
     Route: 048
     Dates: start: 20060209, end: 20060309
  4. SYNTHROID [Concomitant]

REACTIONS (4)
  - CHROMATURIA [None]
  - MUSCULOSKELETAL PAIN [None]
  - PAIN IN EXTREMITY [None]
  - URINE ODOUR ABNORMAL [None]
